FAERS Safety Report 10461189 (Version 1)
Quarter: 2014Q3

REPORT INFORMATION
  Report Type: Spontaneous
  Country: US (occurrence: None)
  Receive Date: 20140917
  Receipt Date: 20140917
  Transmission Date: 20150326
  Serious: Yes (Hospitalization, Other)
  Sender: FDA-Public Use
  Company Number: None

PATIENT
  Age: 83 Year
  Sex: Male

DRUGS (1)
  1. LIPITOR [Suspect]
     Active Substance: ATORVASTATIN CALCIUM
     Dosage: ONCE DAILY TAKEN BY MOUTH
     Route: 048

REACTIONS (8)
  - Abdominal pain upper [None]
  - Abdominal distension [None]
  - Cholelithiasis [None]
  - Diabetes mellitus [None]
  - Dehydration [None]
  - Urine output decreased [None]
  - Asthenia [None]
  - Chromaturia [None]

NARRATIVE: CASE EVENT DATE: 20140831
